FAERS Safety Report 4687013-X (Version None)
Quarter: 2005Q2

REPORT INFORMATION
  Report Type: 
  Country: None (occurrence: None)
  Receive Date: 20050608
  Receipt Date: 20050520
  Transmission Date: 20051028
  Serious: Yes (Hospitalization, Other)
  Sender: FDA-Public Use
  Company Number: USA050597236

PATIENT
  Age: 75 Year
  Sex: Female

DRUGS (12)
  1. FORTEO [Suspect]
     Dates: start: 20040101
  2. PRILOSEC [Concomitant]
  3. LIPITOR [Concomitant]
  4. ASPIRIN [Concomitant]
  5. ATIVAN [Concomitant]
  6. PEPCID [Concomitant]
  7. SINGULAIR (MONTELUKAST /01362601/) [Concomitant]
  8. DIOVAN HCT [Concomitant]
  9. ALBUTEROL [Concomitant]
  10. ATROVENT [Concomitant]
  11. COMBIVENT [Concomitant]
  12. CALCIUM GLUCONATE [Concomitant]

REACTIONS (15)
  - ARTHRALGIA [None]
  - CARDIOMEGALY [None]
  - CHILLS [None]
  - CONTUSION [None]
  - DECREASED APPETITE [None]
  - DEHYDRATION [None]
  - DIARRHOEA [None]
  - FALL [None]
  - JOINT EFFUSION [None]
  - JOINT SWELLING [None]
  - LIVER ABSCESS [None]
  - NAUSEA [None]
  - PYREXIA [None]
  - SPINAL OSTEOARTHRITIS [None]
  - WEIGHT DECREASED [None]
